FAERS Safety Report 7668134-6 (Version None)
Quarter: 2011Q3

REPORT INFORMATION
  Report Type: 
  Country: None (occurrence: None)
  Receive Date: 20110808
  Receipt Date: 20110727
  Transmission Date: 20111222
  Serious: Yes (Other)
  Sender: FDA-Public Use
  Company Number: US-JNJFOC-2011000541

PATIENT
  Age: 26 Year
  Sex: Female

DRUGS (3)
  1. CALCIUM CARBONATE [Suspect]
     Indication: ANTACID THERAPY
     Dosage: DAILY DOSE TEXT: EIGHT TO NINE TABLETS DAILY
     Route: 048
  2. PRENATAL VITAMINS [Suspect]
     Indication: PRENATAL CARE
     Dosage: DAILY DOSE TEXT: UNKNOWN
     Route: 048
  3. ALL OTHER NON-THERAPEUTIC PRODUCTS [Suspect]
     Indication: PRODUCT USED FOR UNKNOWN INDICATION
     Dosage: DAILY DOSE TEXT: SEVERAL GLASSES DAILY
     Route: 048

REACTIONS (7)
  - HYPOVOLAEMIA [None]
  - MATERNAL EXPOSURE DURING PREGNANCY [None]
  - WHITE BLOOD CELLS URINE POSITIVE [None]
  - RENAL FAILURE [None]
  - MILK-ALKALI SYNDROME [None]
  - URINE LEUKOCYTE ESTERASE POSITIVE [None]
  - NEPHROLITHIASIS [None]
